FAERS Safety Report 9173483 (Version 1)
Quarter: 2013Q1

REPORT INFORMATION
  Report Type: Spontaneous
  Country: US (occurrence: US)
  Receive Date: 20130320
  Receipt Date: 20130320
  Transmission Date: 20140127
  Serious: No
  Sender: FDA-Public Use
  Company Number: US-TEVA-392723USA

PATIENT
  Sex: Female
  Weight: 112.59 kg

DRUGS (1)
  1. COPAXONE [Suspect]
     Indication: MULTIPLE SCLEROSIS
     Dosage: 06-FEB-2013
     Dates: start: 20130206

REACTIONS (1)
  - Alopecia [Not Recovered/Not Resolved]
